FAERS Safety Report 17712038 (Version 1)
Quarter: 2020Q2

REPORT INFORMATION
  Report Type: Spontaneous
  Country: US (occurrence: US)
  Receive Date: 20200424
  Receipt Date: 20200424
  Transmission Date: 20200714
  Serious: No
  Sender: FDA-Public Use
  Company Number: None

PATIENT
  Sex: Female

DRUGS (1)
  1. NINLARO [Suspect]
     Active Substance: IXAZOMIB CITRATE
     Indication: PLASMA CELL MYELOMA
     Dosage: TAKE MEDICATION ON DAYS 1,8,AND 15
     Route: 048
     Dates: start: 20200214

REACTIONS (3)
  - Back pain [None]
  - Visual impairment [None]
  - Cataract [None]
